FAERS Safety Report 9668932 (Version 3)
Quarter: 2013Q4

REPORT INFORMATION
  Report Type: Spontaneous
  Country: FI (occurrence: FI)
  Receive Date: 20131105
  Receipt Date: 20131202
  Transmission Date: 20140711
  Serious: Yes (Hospitalization, Other)
  Sender: FDA-Public Use
  Company Number: FI-ELI_LILLY_AND_COMPANY-FI201310005169

PATIENT
  Age: 22 Year
  Sex: Male

DRUGS (8)
  1. ZYPADHERA [Suspect]
     Indication: PSYCHOTIC DISORDER
     Dosage: 300 MG, 2/M
     Route: 030
     Dates: start: 20130723, end: 20131001
  2. SERDOLECT [Concomitant]
     Indication: PSYCHOTIC DISORDER
     Dosage: UNK, UNKNOWN
     Route: 048
     Dates: start: 20130820
  3. DEPRAKINE                          /00228501/ [Concomitant]
     Indication: AFFECTIVE DISORDER
     Dosage: 300 MG, UNKNOWN
     Route: 048
     Dates: start: 20130731
  4. DEPRAKINE                          /00228501/ [Concomitant]
     Dosage: 600 MG, UNKNOWN
     Route: 048
     Dates: start: 20130731
  5. SKINOREN [Concomitant]
     Indication: ACNE
     Dosage: UNK, QD
     Route: 061
  6. KETIPINOR [Concomitant]
     Indication: ANXIETY
     Dosage: 25 MG, PRN
     Route: 048
  7. LORAZEPAM [Concomitant]
     Indication: ANXIETY
     Dosage: UNK UNK, PRN
     Route: 048
  8. STESOLID [Concomitant]
     Indication: PRODUCT USED FOR UNKNOWN INDICATION
     Dosage: UNK, PRN
     Route: 048

REACTIONS (8)
  - Blood pressure fluctuation [Recovered/Resolved]
  - Blood pressure decreased [Recovered/Resolved]
  - Mental impairment [Recovered/Resolved]
  - Stupor [Recovered/Resolved]
  - Fatigue [Recovered/Resolved]
  - Confusional state [Recovered/Resolved]
  - Somnolence [Recovered/Resolved]
  - Depressed level of consciousness [Recovered/Resolved]
